FAERS Safety Report 5338741-4 (Version None)
Quarter: 2007Q2

REPORT INFORMATION
  Report Type: 
  Country: None (occurrence: None)
  Receive Date: 20070322
  Receipt Date: 20060526
  Transmission Date: 20071010
  Serious: Yes (Other)
  Sender: FDA-Public Use
  Company Number: 200611331BCC

PATIENT
  Age: 35 Year
  Sex: Male
  Weight: 84.8226 kg

DRUGS (2)
  1. ALEVE [Suspect]
     Indication: ARTHRALGIA
     Dosage: 440 MG, ONCE, ORAL
     Route: 048
     Dates: start: 20060325
  2. WELLBUTRIN [Concomitant]

REACTIONS (8)
  - EYE SWELLING [None]
  - INJECTION SITE PRURITUS [None]
  - INJECTION SITE URTICARIA [None]
  - OEDEMA PERIPHERAL [None]
  - PRURITUS [None]
  - SKIN REACTION [None]
  - SWELLING FACE [None]
  - URTICARIA [None]
